FAERS Safety Report 5158505-4 (Version None)
Quarter: 2006Q4

REPORT INFORMATION
  Report Type: 
  Country: None (occurrence: None)
  Receive Date: 20061128
  Receipt Date: 20061003
  Transmission Date: 20070319
  Serious: Yes (Disabling)
  Sender: FDA-Public Use
  Company Number: 2006AP04577

PATIENT
  Age: 42 Year
  Sex: Male

DRUGS (2)
  1. SEROQUEL [Suspect]
     Route: 048
  2. LYRICA [Interacting]
     Indication: NEURALGIA
     Route: 048

REACTIONS (3)
  - ABASIA [None]
  - DRUG INTERACTION [None]
  - DYSPHEMIA [None]
